FAERS Safety Report 8746280 (Version 2)
Quarter: 2013Q4

REPORT INFORMATION
  Report Type: Report from Study
  Country: JP (occurrence: JP)
  Receive Date: 20120827
  Receipt Date: 20131108
  Transmission Date: 20140711
  Serious: Yes (Other)
  Sender: FDA-Public Use
  Company Number: JP-009507513-2012SP019234

PATIENT
  Age: 47 Year
  Sex: Male
  Weight: 70 kg

DRUGS (6)
  1. PEGINTRON [Suspect]
     Indication: HEPATITIS C
     Dosage: 1.5 MICROGRAM PER KILOGRAM, QW
     Route: 051
     Dates: start: 20120221, end: 20120316
  2. REBETOL [Suspect]
     Indication: HEPATITIS C
     Dosage: CUMULATIVE DOSE: 20000 MG
     Route: 048
     Dates: start: 20120221, end: 20120313
  3. REBETOL [Suspect]
     Dosage: CUMULATIVE DOSE: 20000 MG
     Route: 048
     Dates: start: 20120313, end: 20120316
  4. TELAVIC [Suspect]
     Indication: HEPATITIS C
     Dosage: CUMULATIVE DOSE: 56250 MG
     Route: 048
     Dates: start: 20120221, end: 20120316
  5. LOXOPROFEN [Concomitant]
     Indication: PYREXIA
     Dosage: FORMULATION:POR, DOSE: 60 MG/DAY AS NEEDED
     Route: 048
     Dates: start: 20120223, end: 20120316
  6. ALOSITOL [Concomitant]
     Indication: BLOOD URIC ACID INCREASED
     Dosage: 200 MG, QD
     Route: 048
     Dates: start: 20120306, end: 20120316

REACTIONS (1)
  - Psychiatric symptom [Recovering/Resolving]
